FAERS Safety Report 8141885-5 (Version None)
Quarter: 2012Q1

REPORT INFORMATION
  Report Type: 
  Country: None (occurrence: None)
  Receive Date: 20120216
  Receipt Date: 20120209
  Transmission Date: 20120608
  Serious: Yes (Hospitalization)
  Sender: FDA-Public Use
  Company Number: US-GLAXOSMITHKLINE-A0886354A

PATIENT
  Age: 61 Year
  Sex: Male
  Weight: 124.1 kg

DRUGS (5)
  1. METFORMIN HCL [Concomitant]
  2. METOPROLOL TARTRATE [Concomitant]
  3. PAXIL [Concomitant]
  4. AVANDIA [Suspect]
     Indication: DIABETES MELLITUS
     Dosage: 8MG TWICE PER DAY
     Route: 048
     Dates: start: 20020301, end: 20060501
  5. LEVOTHROID [Concomitant]

REACTIONS (2)
  - MYOCARDIAL INFARCTION [None]
  - VASCULAR GRAFT [None]
